FAERS Safety Report 21063068 (Version 1)
Quarter: 2022Q3

REPORT INFORMATION
  Report Type: Spontaneous
  Country: FR (occurrence: FR)
  Receive Date: 20220711
  Receipt Date: 20220711
  Transmission Date: 20221026
  Serious: Yes (Hospitalization, Congenital Anomaly, Other)
  Sender: FDA-Public Use
  Company Number: FR-AFSSAPS-TS20221485

PATIENT
  Age: 1 Day
  Sex: Male

DRUGS (11)
  1. VALSARTAN [Suspect]
     Active Substance: VALSARTAN
     Indication: Hypertension
     Dosage: 160 MILLIGRAM, ONCE A DAY
     Route: 064
     Dates: end: 20210903
  2. Carbosymag [Concomitant]
     Indication: Dyspepsia
     Dosage: 1 DOSAGE FORM (3 DAY)
     Route: 064
     Dates: end: 20210903
  3. NAPROXEN SODIUM [Concomitant]
     Active Substance: NAPROXEN SODIUM
     Indication: Vitamin supplementation
     Dosage: UNK
     Route: 064
  4. TRIMEBUTINE MALEATE [Concomitant]
     Active Substance: TRIMEBUTINE MALEATE
     Indication: Abdominal pain
     Dosage: 100 MILLIGRAM
     Route: 064
  5. DESOGESTREL [Concomitant]
     Active Substance: DESOGESTREL
     Indication: Contraception
     Dosage: 1 DOSAGE FORM, ONCE A DAY
     Route: 064
     Dates: end: 20210903
  6. MINERAL OIL [Concomitant]
     Active Substance: MINERAL OIL
     Indication: Constipation
     Dosage: UNK
     Route: 064
     Dates: end: 20210903
  7. POLYETHYLENE GLYCOL 4000 [Concomitant]
     Active Substance: POLYETHYLENE GLYCOL 4000
     Indication: Constipation
     Dosage: 10 GRAM
     Route: 064
  8. AMLODIPINE\INDAPAMIDE [Concomitant]
     Active Substance: AMLODIPINE\INDAPAMIDE
     Indication: Hypertension
     Dosage: 1 DOSAGE FORM, ONCE A DAY
     Route: 064
     Dates: end: 20210903
  9. Normacol lavement adultes [Concomitant]
     Indication: Product used for unknown indication
     Dosage: UNK
     Route: 064
  10. PANTOPRAZOLE [Concomitant]
     Active Substance: PANTOPRAZOLE
     Indication: Product used for unknown indication
     Dosage: 40 MILLIGRAM, ONCE A DAY
     Route: 064
     Dates: end: 20210903
  11. CHOLECALCIFEROL [Concomitant]
     Active Substance: CHOLECALCIFEROL
     Indication: Vitamin supplementation
     Dosage: 1 DOSAGE FORM (1 MONTH)
     Route: 064
     Dates: end: 20210903

REACTIONS (3)
  - Microcephaly [Not Recovered/Not Resolved]
  - Congenital multiplex arthrogryposis [Not Recovered/Not Resolved]
  - Renal failure neonatal [Recovering/Resolving]

NARRATIVE: CASE EVENT DATE: 20210901
